FAERS Safety Report 13169724 (Version 3)
Quarter: 2017Q1

REPORT INFORMATION
  Report Type: Report from Study
  Country: JP (occurrence: JP)
  Receive Date: 20170201
  Receipt Date: 20170330
  Transmission Date: 20170428
  Serious: Yes (Death, Other)
  Sender: FDA-Public Use
  Company Number: JP-BRISTOL-MYERS SQUIBB COMPANY-BMS-2017-006639

PATIENT
  Age: 93 Year
  Sex: Female
  Weight: 37 kg

DRUGS (5)
  1. NEODOPASTON [Concomitant]
     Active Substance: CARBIDOPA\LEVODOPA
     Indication: PARKINSONISM
     Dosage: 400 MG, QD
     Route: 048
     Dates: end: 20150815
  2. REBAMIPIDE [Concomitant]
     Active Substance: REBAMIPIDE
     Indication: CHRONIC GASTRITIS
     Dosage: 200 MG, QD
     Route: 048
     Dates: end: 20150816
  3. APIXABAN [Suspect]
     Active Substance: APIXABAN
     Indication: CEREBROVASCULAR ACCIDENT PROPHYLAXIS
     Dosage: 2.5 MG, BID
     Route: 048
     Dates: start: 20140313, end: 20150816
  4. RHYTHMY [Concomitant]
     Active Substance: RILMAZAFONE HYDROCHLORIDE
     Indication: INSOMNIA
     Dosage: 1 MG, QD
     Route: 048
     Dates: end: 20150816
  5. DONEPEZIL HYDROCHLORIDE. [Concomitant]
     Active Substance: DONEPEZIL HYDROCHLORIDE
     Indication: DEMENTIA
     Dosage: 1.5 MG, QD
     Route: 048
     Dates: end: 20150816

REACTIONS (1)
  - Breast cancer recurrent [Fatal]

NARRATIVE: CASE EVENT DATE: 20150410
